FAERS Safety Report 5052897-2 (Version None)
Quarter: 2006Q3

REPORT INFORMATION
  Report Type: 
  Country: None (occurrence: None)
  Receive Date: 20060712
  Receipt Date: 20060630
  Transmission Date: 20061208
  Serious: Yes (Disabling, Other)
  Sender: FDA-Public Use
  Company Number: 2006-07-0335

PATIENT
  Sex: Female

DRUGS (2)
  1. RIBAVIRIN [Suspect]
     Indication: HEPATITIS C
  2. INTERFERON INJECTABLE [Suspect]
     Indication: HEPATITIS C

REACTIONS (6)
  - AMNESIA [None]
  - BONE PAIN [None]
  - DISTURBANCE IN ATTENTION [None]
  - HEPATOMEGALY [None]
  - UVEITIS [None]
  - WHITE BLOOD CELL COUNT DECREASED [None]
